FAERS Safety Report 10771713 (Version 4)
Quarter: 2015Q2

REPORT INFORMATION
  Report Type: Spontaneous
  Country: US (occurrence: US)
  Receive Date: 20150206
  Receipt Date: 20150617
  Transmission Date: 20150821
  Serious: No
  Sender: FDA-Public Use
  Company Number: US-GLAXOSMITHKLINE-US2014GSK049386

PATIENT
  Age: 60 Year
  Sex: Male
  Weight: 63.95 kg

DRUGS (10)
  1. CRESTOR [Concomitant]
     Active Substance: ROSUVASTATIN CALCIUM
  2. PREDNISONE. [Suspect]
     Active Substance: PREDNISONE
     Indication: PRODUCT USED FOR UNKNOWN INDICATION
  3. VOTRIENT [Suspect]
     Active Substance: PAZOPANIB HYDROCHLORIDE
     Dosage: UNK
  4. PRILOSEC [Concomitant]
     Active Substance: OMEPRAZOLE MAGNESIUM
  5. FLAXSEED [Concomitant]
     Active Substance: FLAX SEED
  6. VITAMIN C [Concomitant]
     Active Substance: ASCORBIC ACID
  7. VOTRIENT [Suspect]
     Active Substance: PAZOPANIB HYDROCHLORIDE
     Dosage: 800 MG, 1D
     Route: 048
  8. CENTRUM MULTIVITAMINS [Concomitant]
     Active Substance: VITAMINS
  9. VOTRIENT [Suspect]
     Active Substance: PAZOPANIB HYDROCHLORIDE
     Indication: LUNG NEOPLASM MALIGNANT
     Dosage: 800 MG, QD
     Route: 048
     Dates: start: 20141029
  10. VOTRIENT [Suspect]
     Active Substance: PAZOPANIB HYDROCHLORIDE
     Indication: BRAIN NEOPLASM MALIGNANT
     Dosage: 800 MG, QD
     Route: 048
     Dates: start: 20141029, end: 20150126

REACTIONS (7)
  - Cyst [Not Recovered/Not Resolved]
  - Dysphonia [Unknown]
  - Stomatitis [Unknown]
  - Increased appetite [Unknown]
  - Hot flush [Unknown]
  - Renal function test abnormal [Unknown]
  - Tinnitus [Unknown]

NARRATIVE: CASE EVENT DATE: 20150126
